FAERS Safety Report 7786291-8 (Version None)
Quarter: 2011Q3

REPORT INFORMATION
  Report Type: 
  Country: None (occurrence: None)
  Receive Date: 20110929
  Receipt Date: 20110921
  Transmission Date: 20111222
  Serious: Yes (Hospitalization, Other)
  Sender: FDA-Public Use
  Company Number: PHEH2009US11084

PATIENT
  Sex: Female

DRUGS (7)
  1. ZOMETA [Suspect]
     Dosage: UNK
  2. XELODA [Concomitant]
  3. MACROBID [Concomitant]
  4. CELEBREX [Concomitant]
     Indication: ARTHRITIS
  5. CELEXA [Concomitant]
     Indication: DEPRESSION
  6. AREDIA [Suspect]
     Dosage: UNK
  7. AMBIEN [Concomitant]

REACTIONS (23)
  - ANXIETY [None]
  - COMA [None]
  - CARDIAC MURMUR [None]
  - DEPRESSION [None]
  - HAEMORRHAGE [None]
  - INSOMNIA [None]
  - CONSTIPATION [None]
  - INJURY [None]
  - PAIN [None]
  - ABDOMINAL PAIN UPPER [None]
  - MIGRAINE [None]
  - HIATUS HERNIA [None]
  - LIP ULCERATION [None]
  - DENTAL CARIES [None]
  - LOWER LIMB FRACTURE [None]
  - ARTHRITIS [None]
  - HYPOAESTHESIA [None]
  - OSTEONECROSIS OF JAW [None]
  - ANAEMIA [None]
  - PULMONARY THROMBOSIS [None]
  - URINARY TRACT INFECTION [None]
  - ANHEDONIA [None]
  - SLEEP APNOEA SYNDROME [None]
